FAERS Safety Report 24215979 (Version 1)
Quarter: 2024Q3

REPORT INFORMATION
  Report Type: Spontaneous
  Country: BR (occurrence: BR)
  Receive Date: 20240816
  Receipt Date: 20240816
  Transmission Date: 20241017
  Serious: Yes (Hospitalization, Other)
  Sender: JOHNSON AND JOHNSON
  Company Number: BR-JNJFOC-20240821429

PATIENT
  Age: 68 Year
  Sex: Female

DRUGS (5)
  1. TECVAYLI [Suspect]
     Active Substance: TECLISTAMAB-CQYV
     Indication: Plasma cell myeloma
     Dosage: DAY 1:: 0.06 MG/KG (3.6MG)
     Route: 058
  2. TECVAYLI [Suspect]
     Active Substance: TECLISTAMAB-CQYV
     Dosage: DAY 4: 0.3 MG/KG (18MG)
     Route: 058
  3. TECVAYLI [Suspect]
     Active Substance: TECLISTAMAB-CQYV
     Dosage: DAY 8: 1.5MG/KG (90 MG)
     Route: 058
  4. ENALAPRIL [Concomitant]
     Active Substance: ENALAPRIL
     Indication: Hypertension
     Route: 065
  5. BISOPROLOL [Concomitant]
     Active Substance: BISOPROLOL\BISOPROLOL FUMARATE
     Indication: Hypertension
     Route: 065

REACTIONS (5)
  - Pancytopenia [Recovering/Resolving]
  - Cytokine release syndrome [Recovered/Resolved]
  - Febrile neutropenia [Recovering/Resolving]
  - Lower respiratory tract infection [Unknown]
  - Upper respiratory tract infection [Unknown]
